FAERS Safety Report 7383678-2 (Version None)
Quarter: 2011Q1

REPORT INFORMATION
  Report Type: 
  Country: None (occurrence: None)
  Receive Date: 20110330
  Receipt Date: 20110321
  Transmission Date: 20110831
  Serious: No
  Sender: FDA-Public Use
  Company Number: US-BAYER-2011-025886

PATIENT
  Age: 50 Year
  Sex: Male

DRUGS (1)
  1. ANTIHEMOPHILIC FACTOR (RECOMBINANT), SUCROSE FORMULATED FS [Suspect]
     Indication: FACTOR VIII DEFICIENCY

REACTIONS (3)
  - HEADACHE [None]
  - NAUSEA [None]
  - HYPERSENSITIVITY [None]
